FAERS Safety Report 8427192-1 (Version None)
Quarter: 2012Q2

REPORT INFORMATION
  Report Type: 
  Country: None (occurrence: None)
  Receive Date: 20120611
  Receipt Date: 20120529
  Transmission Date: 20120825
  Serious: Yes (Other)
  Sender: FDA-Public Use
  Company Number: IL-PFIZER INC-2012121192

PATIENT
  Age: 30 Year
  Sex: Male

DRUGS (7)
  1. BLEOMYCIN SULFATE [Suspect]
     Indication: HODGKIN'S DISEASE
     Dosage: 10 MG/M2,FOR 6 CYCLES
     Route: 065
  2. ETOPOSIDE [Concomitant]
     Indication: HODGKIN'S DISEASE
     Dosage: 300 MG/M2,FOR 6 CYCLES
     Route: 065
  3. PROCARBAZINE [Concomitant]
     Indication: HODGKIN'S DISEASE
     Dosage: 700 MG/M2 FOR 6 CYCLES
     Route: 065
  4. CYCLOPHOSPHAMIDE [Concomitant]
     Indication: HODGKIN'S DISEASE
     Dosage: 650 MG/M2 FOR 6 CYCLES
     Route: 065
  5. DOXORUBICIN HYDROCHLORIDE [Concomitant]
     Indication: HODGKIN'S DISEASE
     Dosage: 25 MG/M2 FOR 6 CYCLES
     Route: 065
  6. PREDNISONE [Concomitant]
     Indication: HODGKIN'S DISEASE
     Dosage: 280 MG/M2 FOR 6 CYCLES
     Route: 065
  7. VINCRISTINE [Concomitant]
     Indication: HODGKIN'S DISEASE
     Dosage: 1.4 MG/M2 FOR 6 CYCLES
     Route: 065

REACTIONS (2)
  - PULMONARY TOXICITY [None]
  - RESPIRATORY DISORDER [None]
